FAERS Safety Report 9434717 (Version 1)
Quarter: 2013Q3

REPORT INFORMATION
  Report Type: Report from Study
  Country: JP (occurrence: JP)
  Receive Date: 20130801
  Receipt Date: 20130801
  Transmission Date: 20140515
  Serious: Yes (Other)
  Sender: FDA-Public Use
  Company Number: JP-ASTELLAS-2011JP000936

PATIENT
  Age: 43 Year
  Sex: Female
  Weight: 63 kg

DRUGS (20)
  1. TACROLIMUS CAPSULES [Suspect]
     Indication: LUPUS NEPHRITIS
     Dosage: 3 MG, UNKNOWN/D
     Route: 048
     Dates: start: 20071031, end: 20110220
  2. TACROLIMUS CAPSULES [Suspect]
     Dosage: 2 MG, UNKNOWN/D
     Route: 048
     Dates: start: 20110221, end: 20110601
  3. TACROLIMUS CAPSULES [Suspect]
     Dosage: 1 MG, UNKNOWN/D
     Route: 048
     Dates: start: 20110602, end: 20110925
  4. PREDNISOLONE [Concomitant]
     Indication: LUPUS NEPHRITIS
     Dosage: 15 MG, UNKNOWN/D
     Route: 048
     Dates: end: 20071030
  5. PREDNISOLONE [Concomitant]
     Dosage: 12.5 MG, UNKNOWN/D
     Route: 048
     Dates: start: 20071031, end: 20071224
  6. PREDNISOLONE [Concomitant]
     Dosage: 10 MG, UNKNOWN/D
     Route: 048
     Dates: start: 20071225
  7. MUCOSTA [Concomitant]
     Indication: PROPHYLAXIS
     Dosage: 200 MG, UNKNOWN/D
     Route: 048
     Dates: end: 20101005
  8. NU-LOTAN [Concomitant]
     Indication: LUPUS NEPHRITIS
     Dosage: 25 MG, UNKNOWN/D
     Route: 048
     Dates: start: 20081029
  9. BONALON [Concomitant]
     Indication: PROPHYLAXIS
     Dosage: 35 MG, WEEKLY
     Route: 048
     Dates: start: 20080131
  10. LAXOBERON [Concomitant]
     Dosage: UNK
     Route: 048
  11. ZYRTEC [Concomitant]
     Indication: ERYTHEMA
     Dosage: 10 MG, UNKNOWN/D
     Route: 048
     Dates: start: 20100728, end: 20100922
  12. CLARITIN [Concomitant]
     Indication: ERYTHEMA
     Dosage: 10 MG, UNKNOWN/D
     Route: 048
     Dates: start: 20101006, end: 20101025
  13. ONEALFA [Concomitant]
     Indication: PROPHYLAXIS
     Dosage: UNK
     Route: 048
     Dates: start: 20071031, end: 20080130
  14. ALESION [Concomitant]
     Dosage: UNK
     Route: 048
     Dates: start: 20071031, end: 20080130
  15. SOSEGON                            /00052101/ [Concomitant]
     Indication: NEPHROLITHIASIS
     Dosage: 15 MG, UNKNOWN/D
     Route: 065
     Dates: start: 20101026, end: 20101026
  16. SOSEGON                            /00052101/ [Concomitant]
     Indication: CALCULUS URETERIC
  17. ATARAX-P                           /00058402/ [Concomitant]
     Indication: NEPHROLITHIASIS
     Dosage: 25 MG, UNKNOWN/D
     Route: 065
     Dates: start: 20101026, end: 20101026
  18. ATARAX-P                           /00058402/ [Concomitant]
     Indication: CALCULUS URETERIC
  19. VOLTAREN                           /00372302/ [Concomitant]
     Indication: NEPHROLITHIASIS
     Dosage: 25 MG, PRN
     Route: 048
     Dates: start: 20101026, end: 20101026
  20. VOLTAREN                           /00372302/ [Concomitant]
     Indication: CALCULUS URETERIC

REACTIONS (4)
  - Nephrolithiasis [Not Recovered/Not Resolved]
  - Calculus ureteric [Not Recovered/Not Resolved]
  - Erythema [Recovered/Resolved]
  - Dermatitis atopic [Recovering/Resolving]
